FAERS Safety Report 20703694 (Version 9)
Quarter: 2024Q2

REPORT INFORMATION
  Report Type: Report from Study
  Country: US (occurrence: US)
  Receive Date: 20220413
  Receipt Date: 20240429
  Transmission Date: 20240716
  Serious: Yes (Other)
  Sender: FDA-Public Use
  Company Number: US-BEIGENE, LTD-BGN-2022-003558

PATIENT

DRUGS (20)
  1. BRUKINSA [Suspect]
     Active Substance: ZANUBRUTINIB
     Indication: Waldenstrom^s macroglobulinaemia
     Dosage: 80 MILLIGRAM, BID
     Route: 048
  2. BRUKINSA [Suspect]
     Active Substance: ZANUBRUTINIB
     Dosage: 80 MILLIGRAM, BID
     Route: 048
  3. BRUKINSA [Suspect]
     Active Substance: ZANUBRUTINIB
     Dosage: 80 MILLIGRAM, BID
     Route: 048
  4. BRUKINSA [Suspect]
     Active Substance: ZANUBRUTINIB
     Dosage: 160 MILLIGRAM, BID
     Route: 048
  5. BRUKINSA [Suspect]
     Active Substance: ZANUBRUTINIB
     Dosage: 160 MILLIGRAM, BID
     Route: 048
  6. BRUKINSA [Suspect]
     Active Substance: ZANUBRUTINIB
     Dosage: 160 MILLIGRAM, BID
     Route: 048
  7. BRUKINSA [Suspect]
     Active Substance: ZANUBRUTINIB
     Dosage: 160 MILLIGRAM, BID
     Route: 048
  8. BRUKINSA [Suspect]
     Active Substance: ZANUBRUTINIB
     Dosage: 80 MILLIGRAM, BID
     Route: 048
     Dates: start: 20220426
  9. SEPTRA [Concomitant]
     Active Substance: SULFAMETHOXAZOLE\TRIMETHOPRIM
     Dosage: ONCE EVERY 3 DAYS
  10. DULOXETINE [Concomitant]
     Active Substance: DULOXETINE
  11. ACYCLOVIR [Concomitant]
     Active Substance: ACYCLOVIR
  12. CARVEDILOL [Concomitant]
     Active Substance: CARVEDILOL
  13. LOSARTAN [Concomitant]
     Active Substance: LOSARTAN
  14. TAMSULOSIN [Concomitant]
     Active Substance: TAMSULOSIN
  15. MYRBETRIQ [Concomitant]
     Active Substance: MIRABEGRON
  16. ATORVASTATIN [Concomitant]
     Active Substance: ATORVASTATIN
  17. TYLENOL [Concomitant]
     Active Substance: ACETAMINOPHEN
  18. BENADRYL [Concomitant]
     Active Substance: DIPHENHYDRAMINE HYDROCHLORIDE
     Indication: Pruritus
  19. BENADRYL [Concomitant]
     Active Substance: DIPHENHYDRAMINE HYDROCHLORIDE
     Indication: Neoplasm malignant
  20. CORTISONE [Concomitant]
     Active Substance: CORTISONE

REACTIONS (20)
  - Haemorrhage [Unknown]
  - Blindness [Not Recovered/Not Resolved]
  - Haemorrhage subcutaneous [Unknown]
  - Eye haemorrhage [Unknown]
  - Macular degeneration [Unknown]
  - Hepatitis B reactivation [Unknown]
  - Skin discolouration [Recovered/Resolved]
  - Ocular discomfort [Unknown]
  - Skin neoplasm excision [Unknown]
  - Contusion [Not Recovered/Not Resolved]
  - Abdominal discomfort [Unknown]
  - Illness [Unknown]
  - Peripheral swelling [Not Recovered/Not Resolved]
  - Limb discomfort [Not Recovered/Not Resolved]
  - Pruritus [Not Recovered/Not Resolved]
  - Dermatitis [Not Recovered/Not Resolved]
  - Skin oedema [Not Recovered/Not Resolved]
  - Diarrhoea [Not Recovered/Not Resolved]
  - Decreased appetite [Not Recovered/Not Resolved]
  - Product use complaint [Unknown]

NARRATIVE: CASE EVENT DATE: 20240417
